FAERS Safety Report 8334183-8 (Version None)
Quarter: 2012Q1

REPORT INFORMATION
  Report Type: 
  Country: None (occurrence: None)
  Receive Date: 20120329
  Receipt Date: 20110310
  Transmission Date: 20120608
  Serious: Yes (Other)
  Sender: FDA-Public Use
  Company Number: WAES 1103USA01695

PATIENT
  Age: 60 Year
  Sex: Male

DRUGS (2)
  1. FOSAPREPITANT DIMEGLUMINE [Suspect]
     Dosage: 150 MG/IV
     Route: 042
     Dates: start: 20110309
  2. DECADRON PHOSPHATE [Suspect]
     Dosage: IV
     Route: 042
     Dates: start: 20110309

REACTIONS (3)
  - PRURITUS [None]
  - COUGH [None]
  - ERYTHEMA [None]
